FAERS Safety Report 5223841-X (Version None)
Quarter: 2007Q1

REPORT INFORMATION
  Report Type: 
  Country: None (occurrence: None)
  Receive Date: 20070125
  Receipt Date: 20070115
  Transmission Date: 20070707
  Serious: Yes (Hospitalization, Other)
  Sender: FDA-Public Use
  Company Number: FRWYE212917JAN07

PATIENT
  Age: 14 Year
  Sex: Female

DRUGS (1)
  1. EFFEXOR XR [Suspect]
     Dosage: ESTGIMATED OVERDOSE AMOUNT: 1125 MG ORAL
     Route: 048
     Dates: start: 20050101, end: 20050101

REACTIONS (3)
  - MYDRIASIS [None]
  - NAUSEA [None]
  - OVERDOSE [None]
